FAERS Safety Report 6724295-4 (Version None)
Quarter: 2010Q2

REPORT INFORMATION
  Report Type: 
  Country: None (occurrence: None)
  Receive Date: 20100513
  Receipt Date: 20100505
  Transmission Date: 20101027
  Serious: Yes (Hospitalization)
  Sender: FDA-Public Use
  Company Number: US-GENENTECH-301510

PATIENT
  Sex: Female

DRUGS (1)
  1. RITUXIMAB [Suspect]
     Indication: RHEUMATOID ARTHRITIS
     Dosage: 500 MG, DAYS 1+15
     Route: 042
     Dates: start: 20090514

REACTIONS (3)
  - BLOOD SODIUM DECREASED [None]
  - DYSPNOEA [None]
  - SURGERY [None]
